FAERS Safety Report 16469383 (Version 1)
Quarter: 2019Q3

REPORT INFORMATION
  Report Type: Spontaneous
  Country: US (occurrence: US)
  Receive Date: 20190621
  Receipt Date: 20190621
  Transmission Date: 20191004
  Serious: Yes (Hospitalization, Other)
  Sender: FDA-Public Use
  Company Number: None

PATIENT
  Sex: Male

DRUGS (7)
  1. PANTOPRAZOLE [Concomitant]
     Active Substance: PANTOPRAZOLE
  2. CELEBREX [Concomitant]
     Active Substance: CELECOXIB
  3. ISOSORBIDE. [Concomitant]
     Active Substance: ISOSORBIDE
  4. ENBREL [Suspect]
     Active Substance: ETANERCEPT
     Indication: RHEUMATOID ARTHRITIS
     Dosage: ?          OTHER FREQUENCY:EVERY 7 DAYS;?
     Route: 058
     Dates: start: 20180122
  5. GLUCOSAMINE [Concomitant]
     Active Substance: GLUCOSAMINE
  6. VITAMIN D [Concomitant]
     Active Substance: VITAMIN D NOS
  7. FOLIC ACID. [Concomitant]
     Active Substance: FOLIC ACID

REACTIONS (2)
  - Vascular graft [None]
  - Therapy cessation [None]
